FAERS Safety Report 14662196 (Version 2)
Quarter: 2018Q2

REPORT INFORMATION
  Report Type: Spontaneous
  Country: US (occurrence: US)
  Receive Date: 20180321
  Receipt Date: 20180402
  Transmission Date: 20180711
  Serious: Yes (Hospitalization, Other)
  Sender: FDA-Public Use
  Company Number: US-B.I. PHARMACEUTICALS,INC./RIDGEFIELD-2018-BI-015078

PATIENT
  Age: 72 Year
  Sex: Male

DRUGS (2)
  1. SPIRIVA [Suspect]
     Active Substance: TIOTROPIUM BROMIDE MONOHYDRATE
     Indication: CHRONIC OBSTRUCTIVE PULMONARY DISEASE
     Dosage: 2 INHALATIONS FROM ONE CAPSULE DAILY; ACTION TAKEN : DOSE NOT CHANGED
     Route: 055
     Dates: start: 201710
  2. SPIRIVA [Suspect]
     Active Substance: TIOTROPIUM BROMIDE MONOHYDRATE
     Dosage: USED MORE THAN ONE CAPSULE IN A DAY
     Route: 055
     Dates: start: 20180316

REACTIONS (6)
  - Overdose [Unknown]
  - Device dislocation [Unknown]
  - Cardiac failure congestive [Unknown]
  - Neoplasm malignant [Recovered/Resolved with Sequelae]
  - Product quality issue [Unknown]
  - Post procedural complication [Unknown]

NARRATIVE: CASE EVENT DATE: 201802
